FAERS Safety Report 8118489-3 (Version None)
Quarter: 2012Q1

REPORT INFORMATION
  Report Type: 
  Country: None (occurrence: None)
  Receive Date: 20120207
  Receipt Date: 20120202
  Transmission Date: 20120608
  Serious: Yes (Hospitalization, Congenital Anomaly, Other)
  Sender: FDA-Public Use
  Company Number: US-PFIZER INC-2012008099

PATIENT
  Sex: Female
  Weight: 3.2 kg

DRUGS (6)
  1. MACROBID [Concomitant]
     Indication: PYREXIA
     Dosage: UNK
     Route: 064
     Dates: start: 20011101
  2. ACETAMINOPHEN [Concomitant]
     Indication: PYREXIA
     Dosage: 650 MG, UNK
     Route: 064
     Dates: start: 20020207
  3. NORTRIPTYLINE [Concomitant]
     Indication: HEADACHE
     Dosage: UNK
     Route: 064
  4. MULTI-VITAMINS [Concomitant]
     Dosage: UNK
     Route: 064
     Dates: start: 20011101
  5. ZOLOFT [Suspect]
     Dosage: 50 MG, EVERY NIGHT
     Route: 064
     Dates: start: 20011101
  6. SUDAFED 12 HOUR [Concomitant]
     Indication: PYREXIA
     Dosage: UNK
     Route: 064
     Dates: start: 20020214

REACTIONS (3)
  - ANAL ATRESIA [None]
  - MATERNAL EXPOSURE TIMING UNSPECIFIED [None]
  - ANAL FISTULA [None]
